FAERS Safety Report 6674565-3 (Version None)
Quarter: 2010Q2

REPORT INFORMATION
  Report Type: 
  Country: None (occurrence: None)
  Receive Date: 20100409
  Receipt Date: 20100329
  Transmission Date: 20101027
  Serious: Yes (Other)
  Sender: FDA-Public Use
  Company Number: GB-PFIZER INC-2010004687

PATIENT
  Sex: Male

DRUGS (2)
  1. ZITHROMAX [Suspect]
     Indication: BRONCHIECTASIS
     Dosage: 3 TIMES WEEKLY
     Route: 048
     Dates: start: 20091201
  2. ZITHROMAX [Suspect]
     Indication: PROPHYLAXIS

REACTIONS (2)
  - HYPONATRAEMIA [None]
  - INAPPROPRIATE ANTIDIURETIC HORMONE SECRETION [None]
